FAERS Safety Report 6874492-2 (Version None)
Quarter: 2010Q3

REPORT INFORMATION
  Report Type: 
  Country: None (occurrence: None)
  Receive Date: 20100723
  Receipt Date: 20100723
  Transmission Date: 20110219
  Serious: No
  Sender: FDA-Public Use
  Company Number: None

PATIENT
  Age: 25 Year
  Sex: Female
  Weight: 63.5036 kg

DRUGS (4)
  1. TOPIRAMATE [Suspect]
     Indication: BIPOLAR DISORDER
     Dosage: 200 1 PO
     Route: 048
  2. TOPIRAMATE [Suspect]
     Indication: MIGRAINE
     Dosage: 200 1 PO
     Route: 048
  3. TOPIRAMATE [Suspect]
     Indication: BIPOLAR DISORDER
     Dosage: 100 2 PO
     Route: 048
     Dates: start: 20100101, end: 20100308
  4. TOPIRAMATE [Suspect]
     Indication: MIGRAINE
     Dosage: 100 2 PO
     Route: 048
     Dates: start: 20100101, end: 20100308

REACTIONS (4)
  - ABNORMAL DREAMS [None]
  - MOOD SWINGS [None]
  - PRODUCT SUBSTITUTION ISSUE [None]
  - SOMNOLENCE [None]
